FAERS Safety Report 5381565-2 (Version None)
Quarter: 2007Q2

REPORT INFORMATION
  Report Type: 
  Country: None (occurrence: None)
  Receive Date: 20070629
  Receipt Date: 20070420
  Transmission Date: 20071010
  Serious: Yes (Other)
  Sender: FDA-Public Use
  Company Number: 2007031822

PATIENT
  Sex: Male
  Weight: 65.8 kg

DRUGS (1)
  1. ZOLOFT [Suspect]
     Indication: DEPRESSION
     Dates: start: 19950101, end: 20000101

REACTIONS (3)
  - AGGRESSION [None]
  - AGITATION [None]
  - PARANOIA [None]
